FAERS Safety Report 9926489 (Version 1)
Quarter: 2014Q1

REPORT INFORMATION
  Report Type: Spontaneous
  Country: US (occurrence: US)
  Receive Date: 20140226
  Receipt Date: 20140226
  Transmission Date: 20141002
  Serious: No
  Sender: FDA-Public Use
  Company Number: US-AMGEN-USASP2013072967

PATIENT
  Age: 8 Year
  Sex: Female

DRUGS (5)
  1. ENBREL [Suspect]
     Indication: PRODUCT USED FOR UNKNOWN INDICATION
     Dosage: 25 MG, EVERY 7 DAYS
     Route: 058
     Dates: start: 2008, end: 201304
  2. NAPROSYN                           /00256201/ [Concomitant]
     Dosage: 250 MG, UNK
  3. BENADRYL CHILDRENS [Concomitant]
     Dosage: UNK
  4. BACTRIM DS [Concomitant]
     Dosage: 800-160, UNK
  5. LIDOCAINE [Concomitant]
     Dosage: UNK

REACTIONS (1)
  - Drug ineffective [Recovering/Resolving]
